FAERS Safety Report 9715769 (Version 5)
Quarter: 2014Q2

REPORT INFORMATION
  Report Type: Spontaneous
  Country: JP (occurrence: JP)
  Receive Date: 20131127
  Receipt Date: 20140612
  Transmission Date: 20141212
  Serious: Yes (Hospitalization, Other)
  Sender: FDA-Public Use
  Company Number: JP-AMGEN-JPNSP2013079029

PATIENT
  Age: 68 Year
  Sex: Female
  Weight: 42 kg

DRUGS (15)
  1. PRALIA [Suspect]
     Indication: OSTEOPOROSIS
     Dosage: 60 MG, UNK
     Route: 058
     Dates: start: 20131001
  2. EDIROL [Concomitant]
     Indication: OSTEOPOROSIS
     Dosage: 0.75 MUG, QD
     Route: 065
     Dates: start: 20130509, end: 20131024
  3. SOLON                              /00016201/ [Concomitant]
     Dosage: 1/TIME, TID
     Route: 048
     Dates: start: 2008
  4. ASPARA-CA [Concomitant]
     Indication: OSTEOPOROSIS
     Dosage: 200 MG, TID
     Route: 048
     Dates: start: 2008, end: 20131024
  5. GASTER D [Concomitant]
     Dosage: 1/TIME, BID
     Route: 048
     Dates: start: 2008, end: 20131024
  6. MAGLAX [Concomitant]
     Dosage: 2/TIMES, BID
     Route: 048
     Dates: start: 2008, end: 20131021
  7. GLUFAST [Concomitant]
     Indication: DIABETES MELLITUS
     Dosage: 1/TIME, TID
     Route: 048
     Dates: start: 20081002, end: 20131024
  8. LASIX                              /00032601/ [Concomitant]
     Indication: CARDIAC FAILURE
     Dosage: 1/TIME, QD
     Route: 048
     Dates: start: 20110707, end: 20131024
  9. FEBUXOSTAT [Concomitant]
     Dosage: 1/TIME, QD
     Route: 048
     Dates: start: 20120412, end: 20131024
  10. FOSAMAC [Concomitant]
     Indication: OSTEOPOROSIS
     Dosage: UNK, QD
     Route: 048
     Dates: start: 2008, end: 20131024
  11. PREDONINE                          /00016201/ [Concomitant]
     Indication: RHEUMATOID ARTHRITIS
     Dosage: 1.5/TIMES, QD
     Route: 048
  12. RHEUMATREX                         /00113801/ [Concomitant]
     Indication: RHEUMATOID ARTHRITIS
     Dosage: UNK, BID
     Route: 048
     Dates: start: 2007, end: 20131024
  13. CELECOX [Concomitant]
     Indication: RHEUMATOID ARTHRITIS
     Dosage: 1/TIME, BID
     Route: 048
     Dates: start: 20131024
  14. LYRICA [Concomitant]
     Dosage: 1/TIME, BID
     Route: 048
     Dates: start: 20130517, end: 20131024
  15. KEISHIBUKURYOGAN [Concomitant]
     Dosage: 1/TIME, BID
     Route: 048
     Dates: end: 20131024

REACTIONS (5)
  - Renal failure acute [Recovered/Resolved]
  - Hypercalcaemia [Recovered/Resolved]
  - Diarrhoea [Unknown]
  - Hypocalcaemia [Recovering/Resolving]
  - Hypophosphataemia [Recovering/Resolving]
